FAERS Safety Report 7581573-7 (Version None)
Quarter: 2011Q2

REPORT INFORMATION
  Report Type: 
  Country: None (occurrence: None)
  Receive Date: 20110629
  Receipt Date: 20110623
  Transmission Date: 20111010
  Serious: Yes (Death)
  Sender: FDA-Public Use
  Company Number: PHHY2011FR55991

PATIENT
  Age: 29 Year
  Sex: Male

DRUGS (2)
  1. RASILEZ [Suspect]
     Dosage: 300 MG, QD
     Route: 048
     Dates: start: 20110401
  2. ISOPTIN [Concomitant]
     Dosage: 240 MG, QD
     Dates: start: 20110501

REACTIONS (2)
  - HEADACHE [None]
  - CARDIAC ARREST [None]
